FAERS Safety Report 8209952-5 (Version None)
Quarter: 2012Q1

REPORT INFORMATION
  Report Type: 
  Country: None (occurrence: None)
  Receive Date: 20120314
  Receipt Date: 20110721
  Transmission Date: 20120608
  Serious: No
  Sender: FDA-Public Use
  Company Number: US-ASTRAZENECA-2011SE44233

PATIENT
  Sex: Male

DRUGS (12)
  1. OMEPRAZOLE [Suspect]
     Route: 048
  2. HUMALOG [Concomitant]
  3. ZOLPIDEM TARTRATE [Concomitant]
  4. PLAVIX [Concomitant]
  5. GABAPENTIN [Concomitant]
  6. ISOSORBIDE MONONITRATE [Concomitant]
  7. SIMVASTATIN [Concomitant]
  8. METOPROLOL SUCCINATE [Suspect]
     Route: 048
  9. LISINOPRIL [Suspect]
     Route: 048
  10. AMLODIPINE BESYLATE [Concomitant]
  11. SERTRALINE HYDROCHLORIDE [Concomitant]
  12. LANTUS [Concomitant]

REACTIONS (6)
  - CARDIAC FAILURE CONGESTIVE [None]
  - GASTROOESOPHAGEAL REFLUX DISEASE [None]
  - HYPOTHYROIDISM [None]
  - PAIN [None]
  - BLOOD CHOLESTEROL INCREASED [None]
  - CONSTIPATION [None]
